FAERS Safety Report 11606692 (Version 1)
Quarter: 2015Q4

REPORT INFORMATION
  Report Type: Spontaneous
  Country: US (occurrence: US)
  Receive Date: 20151007
  Receipt Date: 20151007
  Transmission Date: 20160304
  Serious: No
  Sender: FDA-Public Use
  Company Number: US-GLAXOSMITHKLINE-US2015GSK129474

PATIENT
  Sex: Female

DRUGS (1)
  1. TANZEUM [Suspect]
     Active Substance: ALBIGLUTIDE
     Indication: TYPE 2 DIABETES MELLITUS
     Dosage: 30 MG, WE
     Route: 042
     Dates: start: 201508

REACTIONS (9)
  - Hypoglycaemia [Unknown]
  - Physical product label issue [Unknown]
  - Blood glucose fluctuation [Unknown]
  - Accidental exposure to product [Unknown]
  - Stress [Unknown]
  - Incorrect route of drug administration [Unknown]
  - Fatigue [Unknown]
  - Dry mouth [Unknown]
  - Device use error [Unknown]
